FAERS Safety Report 11130362 (Version 3)
Quarter: 2015Q3

REPORT INFORMATION
  Report Type: Not Available
  Country: FR (occurrence: FR)
  Receive Date: 20150522
  Receipt Date: 20150706
  Transmission Date: 20151125
  Serious: Yes (Other)
  Sender: FDA-Public Use
  Company Number: FR-BEH-2015051131

PATIENT
  Age: 76 Year
  Sex: Female

DRUGS (8)
  1. PAROXETINE [Concomitant]
     Active Substance: PAROXETINE\PAROXETINE HYDROCHLORIDE
     Dosage: 20 MG: 1/2 IN THE MORNING
     Route: 048
  2. CORTICOSTEROIDS [Concomitant]
     Active Substance: CORTICOSTEROID NOS
     Indication: THROMBOCYTOPENIA
     Dosage: INITIATED AT A DOSAGE OF 1 MG/KG
  3. PRIVIGEN [Suspect]
     Active Substance: HUMAN IMMUNOGLOBULIN G
     Indication: THROMBOCYTOPENIA
     Dosage: 10 MG/ML SOLUTION FOR INFUSION, 20 G, 1 INTAKE
     Route: 042
     Dates: start: 20150404, end: 20150404
  4. SOLUPRED 20 MG [Concomitant]
     Indication: CHRONIC LYMPHOCYTIC LEUKAEMIA
     Dosage: COMBINING CORTICOSTEROIDS AND FLUDARA EACH MONTH, 5 DAYS/MONTH (40 MG, 1 IN 1 DAY)
     Route: 048
  5. ISOPTINE 40 MG [Concomitant]
     Dosage: 40 MG: 1 IN THE MORNING AND 1 AT NIGHT
     Route: 048
  6. PLATELETS CONCENTRATE [Concomitant]
     Indication: THROMBOCYTOPENIA
     Dosage: SEVERAL INFUSIONS
  7. LEVOTHYROX 75 ?G [Concomitant]
     Dates: start: 20120101
  8. FLUDARA 10 MG [Concomitant]
     Indication: CHRONIC LYMPHOCYTIC LEUKAEMIA
     Dosage: COMBINING CORTICOSTEROIDS AND FLUDARA EACH MONTH, 5 DAYS/MONTH (30 MG, 1 IN 1 DAY)
     Route: 048

REACTIONS (10)
  - Dyspnoea [Recovered/Resolved]
  - Hypertension [Recovered/Resolved]
  - Tremor [Recovered/Resolved]
  - Body temperature increased [Recovered/Resolved]
  - Occult blood positive [Recovered/Resolved]
  - Haematemesis [Recovered/Resolved]
  - Infusion related reaction [Recovered/Resolved]
  - Nausea [Recovered/Resolved]
  - Hyperhidrosis [Recovered/Resolved]
  - Heart rate increased [Recovered/Resolved]

NARRATIVE: CASE EVENT DATE: 20150404
